FAERS Safety Report 20725558 (Version 1)
Quarter: 2022Q2

REPORT INFORMATION
  Report Type: Spontaneous
  Country: US (occurrence: US)
  Receive Date: 20220419
  Receipt Date: 20220419
  Transmission Date: 20220721
  Serious: No
  Sender: FDA-Public Use
  Company Number: US-PFIZER INC-2021868127

PATIENT
  Age: 50 Year
  Sex: Female
  Weight: 85.261 kg

DRUGS (2)
  1. XANAX [Suspect]
     Active Substance: ALPRAZOLAM
     Indication: Anxiety
     Dosage: 2 MG, 2X/DAY
  2. LOSARTAN [Concomitant]
     Active Substance: LOSARTAN
     Dosage: 50 MG, 1X/DAY (I TAKE 1 TABLET BY MOUTH EVERYDAY AND I TAKE IT IN THE MORNING WITH A FULL STOMACH)
     Route: 048

REACTIONS (9)
  - Drug ineffective [Unknown]
  - Fatigue [Unknown]
  - Taste disorder [Unknown]
  - Off label use [Unknown]
  - Product use issue [Unknown]
  - Poor quality product administered [Unknown]
  - Product physical issue [Unknown]
  - Product coating issue [Unknown]
  - Product taste abnormal [Unknown]
